FAERS Safety Report 4688255-X (Version None)
Quarter: 2005Q2

REPORT INFORMATION
  Report Type: 
  Country: None (occurrence: None)
  Receive Date: 20050609
  Receipt Date: 20050526
  Transmission Date: 20051028
  Serious: Yes (Other)
  Sender: FDA-Public Use
  Company Number: MC200500505

PATIENT
  Age: 50 Year
  Sex: Male

DRUGS (2)
  1. ANGIOMAX [Suspect]
     Indication: CORONARY ANGIOPLASTY
     Dosage: 0.75 MG/KG, BOLUS,  IV BOLUS; 1.75 MG/KG, HR, INTRAVENOUS
  2. PLAVIX [Concomitant]

REACTIONS (3)
  - IATROGENIC INJURY [None]
  - PROCEDURAL COMPLICATION [None]
  - VASCULAR GRAFT COMPLICATION [None]
